FAERS Safety Report 7887737-7 (Version None)
Quarter: 2011Q4

REPORT INFORMATION
  Report Type: 
  Country: None (occurrence: None)
  Receive Date: 20111101
  Receipt Date: 20111018
  Transmission Date: 20120403
  Serious: Yes (Death, Life-Threatening, Hospitalization, Other)
  Sender: FDA-Public Use
  Company Number: 2009BH019827

PATIENT
  Age: 69 Year
  Sex: Male
  Weight: 85 kg

DRUGS (155)
  1. ALBUTEROL SULFATE [Concomitant]
  2. AMIODARONE HCL [Concomitant]
  3. DAPSONE [Concomitant]
  4. DOCUSATE [Concomitant]
  5. FUROSEMIDE [Concomitant]
  6. HYDROCODONE BITARTRATE [Concomitant]
  7. MINERAL OIL EMULSION [Concomitant]
  8. OPIUM AND BELLADONNA [Concomitant]
  9. HYPAQUE	/USA/ [Concomitant]
  10. PENICILLIN G [Concomitant]
  11. PIPERACILLIN SODIUM AND TAZOBACTAM SODIUM INJECTION [Concomitant]
  12. SIROLIMUS [Concomitant]
  13. SOLU-MEDROL [Concomitant]
  14. TYGACIL [Concomitant]
  15. FUROSEMIDE [Concomitant]
  16. ACETAMINOPHEN [Concomitant]
  17. ASPIRIN [Concomitant]
  18. BISACODYL [Concomitant]
  19. CLONAZEPAM [Concomitant]
  20. HYDROMORPHONE HYDROCHLORIDE [Concomitant]
  21. LIDOCAINE [Concomitant]
  22. THYMOGLOBULINE [Concomitant]
  23. GRANULEX [Concomitant]
  24. DOPAMINE AMIODARONE [Concomitant]
  25. PHYTONADIONE [Concomitant]
  26. ALPRAZOLAM [Concomitant]
  27. BENADRYL [Concomitant]
  28. CALCIUM CHLORIDE [Concomitant]
  29. CHLORASEPTIC SORE THROAT SPRAY [Concomitant]
  30. WARFARIN SODIUM [Concomitant]
  31. DAPTOMYCIN [Concomitant]
  32. DESENEX POWDER [Concomitant]
  33. GABAPENTIN [Concomitant]
  34. HYDROCORTISONE SODIUM SUCCINATE [Concomitant]
  35. METHYLPREDNISOLONE [Concomitant]
  36. MILRINONE LACTATE [Concomitant]
  37. MORPHINE SULFATE [Concomitant]
  38. NICARDIPINE HCL [Concomitant]
  39. NYSTATIN [Concomitant]
  40. PEPCID [Concomitant]
  41. QUETIAPINE FUMARATE [Concomitant]
  42. MAGNESIUM SULFATE [Concomitant]
  43. MEXILETINE HYDROCHLORIDE [Concomitant]
  44. NYSTATIN [Concomitant]
  45. OXYCODONE HCL [Concomitant]
  46. NEUPOGEN [Concomitant]
  47. TIMENTIN [Concomitant]
  48. CIPRO [Concomitant]
  49. DEXTROSE [Concomitant]
  50. DIGOXIN [Concomitant]
  51. FAMOTIDINE [Concomitant]
  52. FENTANYL CITRATE [Concomitant]
  53. FLUCONAZOLE [Concomitant]
  54. IPRATROPIUM BROMIDE [Concomitant]
  55. KAYEXALATE [Concomitant]
  56. LEVOTHYROXINE SODIUM [Concomitant]
  57. NITROGLYCERIN COMP. [Concomitant]
  58. POTASSIUM CHLORIDE [Concomitant]
  59. PROPOFOL [Concomitant]
  60. SULFAMETHOXAZOLE AND TRIMETHOPRIM [Concomitant]
  61. SYNTHROID [Concomitant]
  62. VASOPRESSIN INJECTION [Concomitant]
  63. LACTULOSE [Concomitant]
  64. METOLAZONE [Concomitant]
  65. METRONIDAZOLE [Concomitant]
  66. CHLOROTHIAZIDE [Concomitant]
  67. MIDAZOLAM [Concomitant]
  68. WARFARIN SODIUM [Concomitant]
  69. AVELOX [Concomitant]
  70. HEPARIN SODIUM INJECTION [Suspect]
     Indication: HEART TRANSPLANT
     Dosage: SEE IMAGE
     Route: 058
     Dates: start: 20080517, end: 20080819
  71. HEPARIN SODIUM INJECTION [Suspect]
     Indication: HEART TRANSPLANT
     Dosage: SEE IMAGE
     Route: 058
     Dates: start: 20081006, end: 20081006
  72. HEPARIN SODIUM INJECTION [Suspect]
     Indication: HEART TRANSPLANT
     Dosage: SEE IMAGE
     Route: 058
     Dates: start: 20071119, end: 20071128
  73. HEPARIN SODIUM INJECTION [Suspect]
     Indication: HEART TRANSPLANT
     Dosage: SEE IMAGE
     Route: 058
     Dates: start: 20080129, end: 20080208
  74. HEPARIN SODIUM INJECTION [Suspect]
     Indication: HEART TRANSPLANT
     Dosage: SEE IMAGE
     Route: 058
     Dates: start: 20080307, end: 20080331
  75. HEPARIN SODIUM INJECTION [Suspect]
     Indication: HEART TRANSPLANT
     Dosage: SEE IMAGE
     Route: 058
     Dates: start: 20080415, end: 20080819
  76. HEPARIN SODIUM INJECTION [Suspect]
     Indication: HEART TRANSPLANT
     Dosage: SEE IMAGE
     Route: 058
     Dates: start: 20071208, end: 20071208
  77. HEPARIN SODIUM INJECTION [Suspect]
     Indication: HEART TRANSPLANT
     Dosage: SEE IMAGE
     Route: 058
     Dates: start: 20071212, end: 20071212
  78. HEPARIN SODIUM INJECTION [Suspect]
     Indication: HEART TRANSPLANT
     Dosage: SEE IMAGE
     Route: 058
     Dates: start: 20080411, end: 20080517
  79. HEPARIN SODIUM INJECTION [Suspect]
     Indication: HEART TRANSPLANT
     Dosage: SEE IMAGE
     Route: 058
     Dates: start: 20080519, end: 20080818
  80. HEPARIN SODIUM INJECTION [Suspect]
     Indication: HEART TRANSPLANT
     Dosage: SEE IMAGE
     Route: 058
     Dates: start: 20081015, end: 20081020
  81. HEPARIN SODIUM INJECTION [Suspect]
     Indication: HEART TRANSPLANT
     Dosage: SEE IMAGE
     Route: 058
     Dates: start: 20080926
  82. HEPARIN SODIUM INJECTION [Suspect]
     Indication: HEART TRANSPLANT
     Dosage: SEE IMAGE
     Route: 058
     Dates: start: 20071130, end: 20071130
  83. HEPARIN SODIUM INJECTION [Suspect]
     Indication: HEART TRANSPLANT
     Dosage: SEE IMAGE
     Route: 058
     Dates: start: 20080215, end: 20080215
  84. HEPARIN SODIUM INJECTION [Suspect]
     Indication: HEART TRANSPLANT
     Dosage: SEE IMAGE
     Route: 058
     Dates: start: 20081003, end: 20081003
  85. INSULIN ASPART [Concomitant]
  86. EZETIMIBE [Concomitant]
  87. FERROUS SULFATE TAB [Concomitant]
  88. POTASSIUM CHLORIDE [Concomitant]
  89. KEPPRA [Concomitant]
  90. LOPRESSOR [Concomitant]
  91. LORTAB [Concomitant]
  92. NOREPINEPHRINE BITARTRATE [Concomitant]
  93. OMEPRAZOLE [Concomitant]
  94. OXYCODONE HCL [Concomitant]
  95. POTASSIUM PHOSPHATE MONOBASIC [Concomitant]
  96. PREDNISONE [Concomitant]
  97. ZENAUF [Concomitant]
  98. ZOLPIDEM [Concomitant]
  99. FENTANYL CITRATE [Concomitant]
  100. ACYCLOVIR [Concomitant]
  101. ATORVASTATIN [Concomitant]
  102. CARVEDILOL [Concomitant]
  103. COREG [Concomitant]
  104. CYMBALTA [Concomitant]
  105. DOBUTAMINE HCL [Concomitant]
  106. FILGRASTIM [Concomitant]
  107. MAGNESIUM SULFATE [Concomitant]
  108. METOCLOPRAMIDE [Concomitant]
  109. NESIRITIDE [Concomitant]
  110. SODIUM NITROPRUSSIDE [Concomitant]
  111. PRISMASATE BGK 4/2.5 DIALYSATE [Concomitant]
  112. RAPAMUNE [Concomitant]
  113. ROPINIROLE HYDROCHLORIDE [Concomitant]
  114. SPIRONOLACTONE [Concomitant]
  115. TACVO [Concomitant]
  116. DOCUSATE SODIUM [Concomitant]
  117. CEFUROXIME SODIUM [Concomitant]
  118. CELEXA [Concomitant]
  119. ELECTROLYTE SOLUTIONS [Concomitant]
  120. ESOMEPRAZOLE [Concomitant]
  121. GUAR GUM [Concomitant]
  122. HALDOL [Concomitant]
  123. IMIPENEM AND CILASTATIN SODIUM [Concomitant]
  124. ISOSORBIDE MONONITRATE [Concomitant]
  125. LANTUS [Concomitant]
  126. MAGNESIUM OXIDE [Concomitant]
  127. MEXILETINE HYDROCHLORIDE [Concomitant]
  128. NEORAL [Concomitant]
  129. SODIUM CHLORIDE 0.9% IN PLASTIC CONTAINER [Concomitant]
  130. SODIUM PHOSPHATE MONOBASIC [Concomitant]
  131. URSODIOL [Concomitant]
  132. ZOFRAN [Concomitant]
  133. CEFEPIME [Concomitant]
  134. HYDROCORTISONE [Concomitant]
  135. TACROLIMUS [Concomitant]
  136. HEPARIN SODIUM [Suspect]
     Indication: PRODUCT USED FOR UNKNOWN INDICATION
     Dosage: ;CONTINUOUS;IVDRP
     Route: 041
     Dates: start: 20071208, end: 20071212
  137. HEPARIN SODIUM [Suspect]
     Indication: PRODUCT USED FOR UNKNOWN INDICATION
     Dosage: ;CONTINUOUS;IVDRP
     Route: 041
     Dates: start: 20071130, end: 20071201
  138. BENEFIBER [Concomitant]
  139. CARDIZEM [Concomitant]
  140. CEFEPIME [Concomitant]
  141. CHLOROTHIAZIDE [Concomitant]
  142. EUCERIN CREME [Concomitant]
  143. HYDRALAZINE HCL [Concomitant]
  144. ISOPROTERENOL HCL [Concomitant]
  145. LASIX [Concomitant]
  146. LINEZOLID [Concomitant]
  147. LISINOPRIL [Concomitant]
  148. LORAZEPAM [Concomitant]
  149. MUPIROCIN [Concomitant]
  150. PROGRAF [Concomitant]
  151. VALCYTE [Concomitant]
  152. VANCOMYCIN [Concomitant]
  153. VECURONIUM BROMIDE [Concomitant]
  154. MYCOPHENOLATE MOFETIL [Concomitant]
  155. ZOFRAN [Concomitant]

REACTIONS (38)
  - DEEP VEIN THROMBOSIS [None]
  - STENOTROPHOMONAS TEST POSITIVE [None]
  - SMALL INTESTINAL OBSTRUCTION [None]
  - DIALYSIS [None]
  - THROMBOCYTOPENIA [None]
  - SHOCK [None]
  - PSEUDOMONAS TEST POSITIVE [None]
  - HYPOTENSION [None]
  - CULTURE URINE POSITIVE [None]
  - SERRATIA TEST POSITIVE [None]
  - POSTERIOR REVERSIBLE ENCEPHALOPATHY SYNDROME [None]
  - NAUSEA [None]
  - GENERAL PHYSICAL HEALTH DETERIORATION [None]
  - VOMITING [None]
  - RESPIRATORY FAILURE [None]
  - CONVULSION [None]
  - HYPERTENSION [None]
  - DEMENTIA [None]
  - STAPHYLOCOCCAL INFECTION [None]
  - RENAL FAILURE ACUTE [None]
  - SEPSIS [None]
  - ENTEROCOCCUS TEST POSITIVE [None]
  - LOSS OF CONSCIOUSNESS [None]
  - ASPIRATION [None]
  - SPUTUM CULTURE POSITIVE [None]
  - CARDIAC FAILURE CONGESTIVE [None]
  - ESCHERICHIA TEST POSITIVE [None]
  - SUBDURAL HAEMATOMA [None]
  - PNEUMONIA KLEBSIELLA [None]
  - MALNUTRITION [None]
  - PNEUMONIA [None]
  - RENAL FAILURE CHRONIC [None]
  - CLOSTRIDIUM TEST POSITIVE [None]
  - ACTIVATED PARTIAL THROMBOPLASTIN TIME PROLONGED [None]
  - NEUTROPENIA [None]
  - CLOSTRIDIUM DIFFICILE COLITIS [None]
  - HYPONATRAEMIA [None]
  - ANAEMIA [None]
